FAERS Safety Report 16238797 (Version 2)
Quarter: 2019Q2

REPORT INFORMATION
  Report Type: Spontaneous
  Country: RO (occurrence: RO)
  Receive Date: 20190425
  Receipt Date: 20190507
  Transmission Date: 20190711
  Serious: Yes (Death, Other)
  Sender: FDA-Public Use
  Company Number: RO-PFIZER INC-2019173262

PATIENT
  Age: 62 Year
  Sex: Female
  Weight: 38 kg

DRUGS (6)
  1. SUTENT [Suspect]
     Active Substance: SUNITINIB MALATE
     Indication: RENAL CANCER
     Dosage: 50 MG, CYCLIC (2 WEEKS TREATMENT WITH 1 WEEK PAUSE)
     Route: 048
     Dates: start: 20181205, end: 20190315
  2. MEDROL [Concomitant]
     Active Substance: METHYLPREDNISOLONE
     Dosage: 16 MG, 2X/DAY, MORNING AND EVENING
  3. CONCOR [Concomitant]
     Active Substance: BISOPROLOL FUMARATE
     Dosage: 5 MG, 1X/DAY, MORNING
  4. RYTMONORM [Concomitant]
     Active Substance: PROPAFENONE
     Dosage: 0.5 DF, 1X/DAY (HALF DOSE 1X/DAY IN THE MORNING)
  5. ACETAZOLAMIDA [Concomitant]
     Active Substance: ACETAZOLAMIDE
     Dosage: 250 MG, 1X/DAY, MORNING
  6. RANITIDINE. [Concomitant]
     Active Substance: RANITIDINE
     Dosage: 150 MG, 1X/DAY, MORNING

REACTIONS (1)
  - Death [Fatal]

NARRATIVE: CASE EVENT DATE: 20190405
